FAERS Safety Report 20145774 (Version 1)
Quarter: 2021Q4

REPORT INFORMATION
  Report Type: Spontaneous
  Country: IT (occurrence: IT)
  Receive Date: 20211203
  Receipt Date: 20211203
  Transmission Date: 20220303
  Serious: Yes (Death, Other)
  Sender: FDA-Public Use
  Company Number: IT-LUPIN PHARMACEUTICALS INC.-2021-23374

PATIENT
  Sex: Female

DRUGS (1)
  1. HYDROXYCHLOROQUINE SULFATE [Suspect]
     Active Substance: HYDROXYCHLOROQUINE SULFATE
     Indication: Arthritis
     Dosage: 200 MILLIGRAM, BID (TABLET)
     Route: 064

REACTIONS (13)
  - Stillbirth [Fatal]
  - Low birth weight baby [Fatal]
  - Premature baby [Fatal]
  - Eyelid oedema [Fatal]
  - Nuchal rigidity [Fatal]
  - Intestinal malrotation [Fatal]
  - Alveolitis [Fatal]
  - Gastritis [Fatal]
  - Gastrointestinal inflammation [Fatal]
  - Renal tubular disorder [Fatal]
  - Haemorrhage [Fatal]
  - Renal tubular necrosis [Fatal]
  - Foetal exposure during pregnancy [Unknown]
